FAERS Safety Report 24461881 (Version 1)
Quarter: 2024Q4

REPORT INFORMATION
  Report Type: Report from Study
  Country: ZA (occurrence: ZA)
  Receive Date: 20241018
  Receipt Date: 20241018
  Transmission Date: 20250115
  Serious: No
  Sender: ROCHE
  Company Number: ZA-ROCHE-3543614

PATIENT
  Sex: Male

DRUGS (2)
  1. RITUXIMAB [Suspect]
     Active Substance: RITUXIMAB
     Indication: Rheumatoid arthritis
     Dosage: SHE LAST USED RISTOVA ON 26/APR/2022.
     Route: 041
     Dates: start: 20220404
  2. MABTHERA [Suspect]
     Active Substance: RITUXIMAB
     Indication: Rheumatoid arthritis
     Dosage: SHE LAST USED MABTHERA ON 05/OCT/2020.
     Route: 065
     Dates: start: 20220404

REACTIONS (3)
  - Rheumatoid arthritis [Unknown]
  - Haemoglobin increased [Unknown]
  - C-reactive protein increased [Unknown]
